FAERS Safety Report 7308143-X (Version None)
Quarter: 2011Q1

REPORT INFORMATION
  Report Type: 
  Country: None (occurrence: None)
  Receive Date: 20110223
  Receipt Date: 20110216
  Transmission Date: 20110831
  Serious: Yes (Hospitalization)
  Sender: FDA-Public Use
  Company Number: NL-ROCHE-760372

PATIENT
  Sex: Male

DRUGS (6)
  1. PRIMPERAN TAB [Concomitant]
  2. EPIRUBICIN [Suspect]
     Indication: GASTRIC CANCER
     Route: 042
     Dates: start: 20101126
  3. OMEPRAZOLE [Concomitant]
  4. ATENOLOL [Concomitant]
  5. CAPECITABINE [Suspect]
     Indication: GASTRIC CANCER
     Dosage: FREQUENCY: BID FOR 2 WEEKS, 3 WEEKS, BID 5XPER WEEK, 5 WEEKS
     Route: 048
     Dates: start: 20101126
  6. CISPLATIN [Suspect]
     Indication: GASTRIC CANCER
     Dosage: FREQUENCY: Q3W / Q1W, 5 WEEKS
     Route: 042
     Dates: start: 20101126

REACTIONS (1)
  - LARGE INTESTINE PERFORATION [None]
